FAERS Safety Report 15989532 (Version 1)
Quarter: 2019Q1

REPORT INFORMATION
  Report Type: Spontaneous
  Country: US (occurrence: US)
  Receive Date: 20190125
  Receipt Date: 20190125
  Transmission Date: 20190418
  Serious: Yes (Hospitalization)
  Sender: FDA-Public Use
  Company Number: None

PATIENT
  Age: 70 Year
  Sex: Female

DRUGS (15)
  1. LASIX [Concomitant]
     Active Substance: FUROSEMIDE
  2. ACTOS [Concomitant]
     Active Substance: PIOGLITAZONE HYDROCHLORIDE
  3. FERROUS SULFATE. [Concomitant]
     Active Substance: FERROUS SULFATE
  4. ATROVENT INHL SOLN [Concomitant]
  5. TRACLEER [Suspect]
     Active Substance: BOSENTAN
     Indication: PULMONARY ARTERIAL HYPERTENSION
     Route: 048
     Dates: start: 201412
  6. OMEPRAZO [Concomitant]
  7. GLIPIZIDE. [Concomitant]
     Active Substance: GLIPIZIDE
  8. LISINOPRIL. [Concomitant]
     Active Substance: LISINOPRIL
  9. TRADJENTA [Concomitant]
     Active Substance: LINAGLIPTIN
  10. SILDENAFIL. [Concomitant]
     Active Substance: SILDENAFIL
  11. SPIRIVA RESPIMAT [Concomitant]
     Active Substance: TIOTROPIUM BROMIDE
  12. SPIRONOLACTONE. [Concomitant]
     Active Substance: SPIRONOLACTONE
  13. ASCORBIC ACID. [Concomitant]
     Active Substance: ASCORBIC ACID
  14. METOPROLOL. [Concomitant]
     Active Substance: METOPROLOL
  15. LIPITOR [Concomitant]
     Active Substance: ATORVASTATIN CALCIUM

REACTIONS (3)
  - Dyspnoea [None]
  - Mitral valve stenosis [None]
  - Weight increased [None]

NARRATIVE: CASE EVENT DATE: 20190110
